FAERS Safety Report 6112991-1 (Version None)
Quarter: 2009Q1

REPORT INFORMATION
  Report Type: 
  Country: None (occurrence: None)
  Receive Date: 20090312
  Receipt Date: 20090305
  Transmission Date: 20090719
  Serious: Yes (Hospitalization, Congenital Anomaly)
  Sender: FDA-Public Use
  Company Number: A0747576A

PATIENT
  Sex: Female
  Weight: 2.4 kg

DRUGS (7)
  1. PAXIL [Suspect]
     Indication: DEPRESSION
     Dosage: 10MG PER DAY
     Dates: start: 20010101, end: 20020101
  2. VITAMIN TAB [Concomitant]
  3. BENADRYL [Concomitant]
  4. PEPCID AC [Concomitant]
  5. AMOXICILLIN [Concomitant]
  6. BACTRIM [Concomitant]
  7. ACETAMINOPHEN [Concomitant]

REACTIONS (8)
  - ANKYLOGLOSSIA CONGENITAL [None]
  - ATRIAL SEPTAL DEFECT [None]
  - DRUG EXPOSURE DURING PREGNANCY [None]
  - DYSMORPHISM [None]
  - HYDRONEPHROSIS [None]
  - PATENT DUCTUS ARTERIOSUS [None]
  - PERSISTENT FOETAL CIRCULATION [None]
  - VESICOURETERIC REFLUX [None]
